FAERS Safety Report 7527505-9 (Version None)
Quarter: 2011Q2

REPORT INFORMATION
  Report Type: 
  Country: None (occurrence: None)
  Receive Date: 20110607
  Receipt Date: 20110118
  Transmission Date: 20111010
  Serious: Yes (Hospitalization, Other)
  Sender: FDA-Public Use
  Company Number: US-BAYER-201020707NA

PATIENT
  Age: 20 Year
  Sex: Female
  Weight: 100 kg

DRUGS (3)
  1. SEPTRA [Concomitant]
     Indication: URINARY TRACT INFECTION
  2. YASMIN [Suspect]
     Indication: MENSTRUAL CYCLE MANAGEMENT
     Dosage: UNK
     Dates: start: 20070104, end: 20070301
  3. YAZ [Suspect]
     Indication: MENSTRUAL CYCLE MANAGEMENT
     Dosage: UNK UNK, UNK
     Route: 048
     Dates: start: 20070101

REACTIONS (2)
  - PULMONARY EMBOLISM [None]
  - DYSPNOEA [None]
